FAERS Safety Report 18881529 (Version 2)
Quarter: 2021Q1

REPORT INFORMATION
  Report Type: Report from Study
  Country: CO (occurrence: CO)
  Receive Date: 20210211
  Receipt Date: 20210227
  Transmission Date: 20210420
  Serious: Yes (Other)
  Sender: FDA-Public Use
  Company Number: NVSC2021CO018939

PATIENT
  Sex: Female
  Weight: 52 kg

DRUGS (5)
  1. VOTRIENT [Suspect]
     Active Substance: PAZOPANIB HYDROCHLORIDE
     Dosage: 800 MG, QD (START DATE: 50 DAYS; TABLET OF 400 MG)
     Route: 048
  2. VOTRIENT [Suspect]
     Active Substance: PAZOPANIB HYDROCHLORIDE
     Indication: SOFT TISSUE SARCOMA
     Dosage: 400 MG, QD
     Route: 048
  3. VALPROIC ACID. [Concomitant]
     Active Substance: VALPROIC ACID
     Indication: PAIN
     Dosage: 250 MG, QD (START DATE: 15 DAYS AGO)
     Route: 048
  4. ACETAMINOPHEN. [Concomitant]
     Active Substance: ACETAMINOPHEN
     Indication: PAIN
     Dosage: 500 MG, PRN (AT NEED)
     Route: 048
  5. HYDROMORPHONE [Concomitant]
     Active Substance: HYDROMORPHONE
     Indication: PAIN
     Dosage: 2.5 MG, Q4H (ONE YEAR AGO)
     Route: 048

REACTIONS (9)
  - Choking [Unknown]
  - Inflammation [Recovered/Resolved]
  - Weight increased [Unknown]
  - Product dose omission issue [Unknown]
  - Abdominal pain [Unknown]
  - Dyspnoea [Unknown]
  - Swelling [Unknown]
  - Appetite disorder [Unknown]
  - Nausea [Not Recovered/Not Resolved]
